FAERS Safety Report 10625111 (Version 1)
Quarter: 2014Q4

REPORT INFORMATION
  Report Type: Spontaneous
  Country: FR (occurrence: None)
  Receive Date: 20141201
  Receipt Date: 20141201
  Transmission Date: 20150529
  Serious: Yes (Death, Hospitalization, Other)
  Sender: FDA-Public Use
  Company Number: FR-ZYDUS-005770

PATIENT
  Age: 70 Year
  Sex: Male

DRUGS (18)
  1. ROCEPHINE (ROCEPHINE) [Concomitant]
  2. ZYLORIC (ZYLORIC) [Concomitant]
  3. GLUCOPHAGE (GLUCOPHAGE) [Concomitant]
  4. TRIFLUCAN (TRIFLUCAN) [Concomitant]
  5. ATENOLOLO (ATENOLOLO) [Concomitant]
  6. AZOPT (AZOPT) [Concomitant]
  7. FUNGIZONE (FUNGIZONE) [Concomitant]
  8. LEVETIRACETAM (LEVETIRACETAM) [Suspect]
     Active Substance: LEVETIRACETAM
     Route: 048
     Dates: end: 201410
  9. TRIFLUCAN (TRIFLUCAN) [Concomitant]
  10. LUMIGAN (LUMIGAN) [Concomitant]
  11. LOVENOX (LOVENOX) [Concomitant]
  12. DOLIPRANE (DOLIPRANE) [Concomitant]
  13. GENTAMICIN (GENTAMICIN) [Concomitant]
     Active Substance: GENTAMICIN
  14. INVANZ [Suspect]
     Active Substance: ERTAPENEM SODIUM
     Dates: start: 20140425, end: 20140505
  15. AMIKACIN (AMIKACIN) [Concomitant]
     Active Substance: AMIKACIN
  16. FORLAX (FORLAX) [Concomitant]
  17. INEXIUM (INEXIUM) [Concomitant]
  18. VALPROIC ACID (VALPROIC ACID) [Suspect]
     Active Substance: VALPROIC ACID
     Route: 048
     Dates: end: 20140503

REACTIONS (10)
  - Loss of consciousness [None]
  - Sepsis [None]
  - Status epilepticus [None]
  - Renal abscess [None]
  - Aphasia [None]
  - Drug interaction [None]
  - Enterobacter bacteraemia [None]
  - Pneumonia aspiration [None]
  - Deep vein thrombosis [None]
  - Anticonvulsant drug level decreased [None]
